FAERS Safety Report 7356228-4 (Version None)
Quarter: 2011Q1

REPORT INFORMATION
  Report Type: 
  Country: None (occurrence: None)
  Receive Date: 20110316
  Receipt Date: 20100204
  Transmission Date: 20110831
  Serious: No
  Sender: FDA-Public Use
  Company Number: US-BAYER-201013451NA

PATIENT
  Sex: Female
  Weight: 54.422 kg

DRUGS (1)
  1. MIRENA [Suspect]
     Indication: CONTRACEPTION
     Dosage: 20 ?G/D, CONT
     Route: 015
     Dates: start: 20081212, end: 20091221

REACTIONS (3)
  - PALPITATIONS [None]
  - CHEST PAIN [None]
  - DEPRESSION [None]
